FAERS Safety Report 17293030 (Version 2)
Quarter: 2020Q2

REPORT INFORMATION
  Report Type: Spontaneous
  Country: US (occurrence: US)
  Receive Date: 20200121
  Receipt Date: 20200629
  Transmission Date: 20200713
  Serious: No
  Sender: FDA-Public Use
  Company Number: US-PFIZER INC-2019546158

PATIENT
  Age: 66 Year
  Sex: Female
  Weight: 69.38 kg

DRUGS (6)
  1. IBRANCE [Suspect]
     Active Substance: PALBOCICLIB
     Dosage: 125 MG, CYCLIC (OVER A DAY FOR 21 DAYS, 1 DAY OFF)
  2. IBRANCE [Suspect]
     Active Substance: PALBOCICLIB
     Indication: BREAST CANCER METASTATIC
     Dosage: 125 MG, CYCLIC (OVER A DAY FOR 21 DAYS, 1 DAY OFF)
     Dates: start: 20160306
  3. FASLODEX [Concomitant]
     Active Substance: FULVESTRANT
     Dosage: 500 MG, MONTHLY ( 250 MG EACH INJECTION- 2 INJECTION A MONTH , 250 MG IN EACH BUTTOCK)
     Dates: start: 201603
  4. CLOPIDOGREL [Concomitant]
     Active Substance: CLOPIDOGREL BISULFATE
     Indication: PERIPHERAL VENOUS DISEASE
  5. CARVEDILOL. [Concomitant]
     Active Substance: CARVEDILOL
     Dosage: 3.125 MG, UNK
     Dates: start: 201803
  6. CLOPIDOGREL [Concomitant]
     Active Substance: CLOPIDOGREL BISULFATE
     Indication: ANTICOAGULANT THERAPY
     Dosage: 75 MG, UNK
     Dates: start: 20191113

REACTIONS (11)
  - Blood bilirubin decreased [Unknown]
  - Mean cell volume increased [Unknown]
  - Mean cell haemoglobin increased [Unknown]
  - White blood cell count decreased [Unknown]
  - Haematocrit decreased [Unknown]
  - Off label use [Unknown]
  - Haemoglobin decreased [Unknown]
  - Carbon dioxide decreased [Unknown]
  - Red blood cell count decreased [Unknown]
  - Blood iron decreased [Unknown]
  - Carbohydrate antigen 27.29 increased [Unknown]

NARRATIVE: CASE EVENT DATE: 20160306
